FAERS Safety Report 5874713-9 (Version None)
Quarter: 2008Q3

REPORT INFORMATION
  Report Type: 
  Country: None (occurrence: None)
  Receive Date: 20080903
  Receipt Date: 20080826
  Transmission Date: 20090109
  Serious: Yes (Hospitalization)
  Sender: FDA-Public Use
  Company Number: 2008JP003284

PATIENT
  Age: 54 Year
  Sex: Male
  Weight: 71 kg

DRUGS (5)
  1. PROGRAF [Suspect]
     Indication: RHEUMATOID ARTHRITIS
     Dosage: 1 MG, UID/QD, ORAL
     Route: 048
     Dates: start: 20080304, end: 20080710
  2. PREDNISOLONE [Suspect]
     Indication: RHEUMATOID ARTHRITIS
     Dosage: 2.5 MG, UID/QD, ORAL; 40 MG, /D, ORAL; 30 MG, /D, ORAL
     Route: 048
     Dates: start: 20080304, end: 20080805
  3. PREDNISOLONE [Suspect]
     Indication: RHEUMATOID ARTHRITIS
     Dosage: 2.5 MG, UID/QD, ORAL; 40 MG, /D, ORAL; 30 MG, /D, ORAL
     Route: 048
     Dates: start: 20080806, end: 20080820
  4. PREDNISOLONE [Suspect]
     Indication: RHEUMATOID ARTHRITIS
     Dosage: 2.5 MG, UID/QD, ORAL; 40 MG, /D, ORAL; 30 MG, /D, ORAL
     Route: 048
     Dates: start: 20080821
  5. OMEPRAL(OMEPRAZOLE SODIUM) TABLET [Suspect]
     Indication: REFLUX OESOPHAGITIS
     Dosage: 10 MG, UID/QD, ORAL
     Route: 048
     Dates: start: 20080304

REACTIONS (1)
  - NEPHROTIC SYNDROME [None]
